FAERS Safety Report 5208026-5 (Version None)
Quarter: 2007Q1

REPORT INFORMATION
  Report Type: 
  Country: None (occurrence: None)
  Receive Date: 20070115
  Receipt Date: 20070104
  Transmission Date: 20070707
  Serious: Yes (Other)
  Sender: FDA-Public Use
  Company Number: PHRM2006FR03086

PATIENT
  Age: 52 Year
  Sex: Female
  Weight: 76 kg

DRUGS (2)
  1. ZOMETA [Suspect]
     Indication: METASTASES TO BONE
     Dosage: 4 MG, TIW
     Route: 042
     Dates: start: 20050301, end: 20060701
  2. XELODA [Concomitant]
     Indication: METASTASES TO BONE
     Dosage: 4000 MG PER DAY, 14 DAYS PER MONTH
     Route: 048
     Dates: start: 20060401

REACTIONS (3)
  - ASTHENIA [None]
  - OSTEONECROSIS [None]
  - TOOTH EXTRACTION [None]
